FAERS Safety Report 4445928-1 (Version None)
Quarter: 2004Q3

REPORT INFORMATION
  Report Type: 
  Country: None (occurrence: None)
  Receive Date: 20040903
  Receipt Date: 20040818
  Transmission Date: 20050211
  Serious: Yes (Other)
  Sender: FDA-Public Use
  Company Number: 2004BL006036

PATIENT
  Age: 82 Year
  Sex: Female

DRUGS (1)
  1. BRIMONIDINE TARTRATE OPHTHALMIC SOLUTION 0.2% [Suspect]
     Indication: GLAUCOMA

REACTIONS (7)
  - CORNEAL DEPOSITS [None]
  - EYE REDNESS [None]
  - IRIDOCYCLITIS [None]
  - IRIS ADHESIONS [None]
  - KOEPPE NODULES [None]
  - PHOTOPHOBIA [None]
  - VISION BLURRED [None]
